FAERS Safety Report 6580731-8 (Version None)
Quarter: 2010Q1

REPORT INFORMATION
  Report Type: 
  Country: None (occurrence: None)
  Receive Date: 20100212
  Receipt Date: 20100204
  Transmission Date: 20100710
  Serious: Yes (Hospitalization, Other)
  Sender: FDA-Public Use
  Company Number: CA-JNJFOC-20100203538

PATIENT
  Sex: Male
  Weight: 63.5 kg

DRUGS (2)
  1. REMICADE [Suspect]
     Indication: CROHN'S DISEASE
     Dosage: RECEIVED 3 INFUSIONS
     Route: 042
  2. PREDNISONE [Concomitant]
     Route: 048

REACTIONS (15)
  - AGGRESSION [None]
  - CARDIAC DISORDER [None]
  - CHEST PAIN [None]
  - DEPRESSION [None]
  - DIARRHOEA [None]
  - DYSPNOEA [None]
  - HYPERSOMNIA [None]
  - HYPOAESTHESIA [None]
  - MALAISE [None]
  - NECK PAIN [None]
  - NERVOUS SYSTEM DISORDER [None]
  - PERSONALITY CHANGE [None]
  - PHYSICAL DISABILITY [None]
  - RENAL IMPAIRMENT [None]
  - VOMITING [None]
